FAERS Safety Report 24185706 (Version 1)
Quarter: 2024Q3

REPORT INFORMATION
  Report Type: Spontaneous
  Country: AU (occurrence: AU)
  Receive Date: 20240807
  Receipt Date: 20240807
  Transmission Date: 20241017
  Serious: Yes (Other)
  Sender: Waylis
  Company Number: AU-WAYLIS-2024-AU-000319

PATIENT
  Sex: Male

DRUGS (2)
  1. DUTASTERIDE\TAMSULOSIN HYDROCHLORIDE [Suspect]
     Active Substance: DUTASTERIDE\TAMSULOSIN HYDROCHLORIDE
     Indication: Product used for unknown indication
     Dosage: UNK UNK, QD
     Dates: start: 202406
  2. NAFRONYL [Concomitant]
     Active Substance: NAFRONYL

REACTIONS (3)
  - Cerebrovascular accident [Unknown]
  - Throat irritation [Not Recovered/Not Resolved]
  - Wrong technique in product usage process [Unknown]

NARRATIVE: CASE EVENT DATE: 20240601
